FAERS Safety Report 7416594-8 (Version None)
Quarter: 2011Q2

REPORT INFORMATION
  Report Type: 
  Country: None (occurrence: None)
  Receive Date: 20110415
  Receipt Date: 20110407
  Transmission Date: 20111010
  Serious: Yes (Hospitalization)
  Sender: FDA-Public Use
  Company Number: US-BIOGENIDEC-2011BI013191

PATIENT
  Age: 44 Year
  Sex: Female

DRUGS (2)
  1. TYSABRI [Suspect]
     Indication: MULTIPLE SCLEROSIS
     Route: 042
     Dates: start: 20071206, end: 20090921
  2. TYSABRI [Suspect]
     Route: 042
     Dates: start: 20101007

REACTIONS (7)
  - CONTUSION [None]
  - BENIGN NEOPLASM [None]
  - ROAD TRAFFIC ACCIDENT [None]
  - EAR INFECTION [None]
  - FOOT FRACTURE [None]
  - NERVE INJURY [None]
  - FALL [None]
